FAERS Safety Report 25034578 (Version 1)
Quarter: 2025Q1

REPORT INFORMATION
  Report Type: Spontaneous
  Country: IT (occurrence: IT)
  Receive Date: 20250304
  Receipt Date: 20250304
  Transmission Date: 20250408
  Serious: Yes (Other)
  Sender: GENMAB
  Company Number: IT-ABBVIE-6152040

PATIENT
  Age: 52 Year
  Sex: Male

DRUGS (1)
  1. EPCORITAMAB [Suspect]
     Active Substance: EPCORITAMAB
     Indication: Product used for unknown indication
     Route: 058
     Dates: start: 202408

REACTIONS (2)
  - Hepatic lesion [Unknown]
  - Gastrointestinal disorder [Unknown]
